FAERS Safety Report 10009595 (Version 3)
Quarter: 2014Q4

REPORT INFORMATION
  Report Type: Report from Study
  Country: BE (occurrence: BE)
  Receive Date: 20140313
  Receipt Date: 20141125
  Transmission Date: 20150528
  Serious: Yes (Hospitalization)
  Sender: FDA-Public Use
  Company Number: BE-TEVA-364080USA

PATIENT
  Age: 51 Year
  Sex: Female
  Weight: 71 kg

DRUGS (16)
  1. NATRIUM BICARBONAT [Concomitant]
     Indication: INFECTION
     Dates: start: 20120821, end: 20120821
  2. PANTOMED [Concomitant]
     Active Substance: DEXPANTHENOL
     Indication: GASTRIC ULCER
     Dates: start: 20120816
  3. NEUPOGEN [Concomitant]
     Active Substance: FILGRASTIM
     Indication: NEUTROPENIA
     Dates: start: 20121013, end: 20121128
  4. ALIZAPRIDE [Concomitant]
     Active Substance: ALIZAPRIDE
     Indication: NAUSEA
     Dates: start: 20121110, end: 20121113
  5. IODEX [Concomitant]
  6. AUGMENTIN [Concomitant]
     Active Substance: AMOXICILLIN\CLAVULANATE POTASSIUM
     Indication: INFECTION
     Dates: start: 20120823, end: 20120828
  7. BELSAR PLUS [Concomitant]
     Dates: start: 20120916
  8. RITUXIMAB [Suspect]
     Active Substance: RITUXIMAB
     Indication: LYMPHOMA
     Dosage: DOSE CONCENTRATION: 0.69 MG/ML
     Route: 042
     Dates: start: 20111021
  9. OLMEDAY PLUS [Concomitant]
     Indication: HYPERTENSION
     Dates: start: 1992
  10. BENDAMUSTINE [Suspect]
     Active Substance: BENDAMUSTINE
     Indication: LYMPHOMA
     Route: 042
     Dates: start: 20111021
  11. EMCORETIC [Concomitant]
     Active Substance: BISOPROLOL FUMARATE\HYDROCHLOROTHIAZIDE
     Indication: HYPERTENSION
     Dates: start: 1992
  12. ROCEPHIN [Concomitant]
     Active Substance: CEFTRIAXONE SODIUM
     Indication: INFECTION
     Dates: start: 20120819, end: 20120822
  13. ZOVIRAX [Concomitant]
     Active Substance: ACYCLOVIR
     Indication: INFECTION
     Dates: start: 20120904, end: 20121106
  14. BELSAR PLUS [Concomitant]
     Indication: HYPERTENSION
     Dates: start: 20120819, end: 20120911
  15. OMEPRAZOLE. [Concomitant]
     Active Substance: OMEPRAZOLE
     Indication: GASTRIC ULCER
     Dates: start: 20120911, end: 20120915
  16. PARACETAMOL [Concomitant]
     Active Substance: ACETAMINOPHEN
     Indication: PYREXIA
     Dates: start: 20120820, end: 20120905

REACTIONS (2)
  - Vaginal ulceration [Recovered/Resolved]
  - Mucosal pain [Recovered/Resolved]

NARRATIVE: CASE EVENT DATE: 20120812
